FAERS Safety Report 4476000-2 (Version None)
Quarter: 2004Q3

REPORT INFORMATION
  Report Type: 
  Country: None (occurrence: None)
  Receive Date: 20040923
  Receipt Date: 20040715
  Transmission Date: 20050211
  Serious: No
  Sender: FDA-Public Use
  Company Number: USA040670496

PATIENT
  Age: 83 Year
  Sex: Female
  Weight: 62 kg

DRUGS (3)
  1. FORTEO [Suspect]
     Indication: OSTEOPOROSIS
     Dosage: 20 UG SDAY
     Dates: start: 20040601
  2. ISOPTIN [Concomitant]
  3. GALENIC/HYDROCHLOROTHIAZIDE/VALSARTAN) [Concomitant]

REACTIONS (2)
  - CHEST PAIN [None]
  - COSTOCHONDRITIS [None]
